FAERS Safety Report 9674287 (Version 2)
Quarter: 2013Q4

REPORT INFORMATION
  Report Type: Report from Study
  Country: MX (occurrence: MX)
  Receive Date: 20131107
  Receipt Date: 20131114
  Transmission Date: 20140711
  Serious: Yes (Death)
  Sender: FDA-Public Use
  Company Number: MX-ROCHE-1300563

PATIENT
  Sex: Male

DRUGS (2)
  1. XELODA [Suspect]
     Indication: GASTRIC CANCER
     Route: 048
     Dates: end: 201307
  2. XELODA [Suspect]
     Dosage: DAILY (4-0-4) DURING 14 DAYS FOLLOWED BY 7-DAY REST PERIOD
     Route: 048
     Dates: end: 20130715

REACTIONS (2)
  - Metastases to central nervous system [Fatal]
  - Metastases to bone [Fatal]
